FAERS Safety Report 7428706-0 (Version None)
Quarter: 2011Q2

REPORT INFORMATION
  Report Type: 
  Country: None (occurrence: None)
  Receive Date: 20110413
  Receipt Date: 20110403
  Transmission Date: 20111010
  Serious: Yes (Other)
  Sender: FDA-Public Use
  Company Number: BR-001650

PATIENT
  Sex: Male
  Weight: 18.5 kg

DRUGS (3)
  1. PARACETAMOL (PRACETAMOL) [Concomitant]
  2. DEXCHLORPHENIRAMINE (DEXCHLORPHENRAMINE) [Concomitant]
  3. NAGLAZYME [Suspect]
     Indication: MUCOPOLYSACCHARIDOSIS IV
     Dosage: 1 MG/KG 1X/WEEK, INTRAVENOUS DRIP
     Dates: start: 20080918

REACTIONS (2)
  - ABASIA [None]
  - CERVICAL CORD COMPRESSION [None]
